FAERS Safety Report 19078761 (Version 1)
Quarter: 2021Q1

REPORT INFORMATION
  Report Type: Spontaneous
  Country: US (occurrence: US)
  Receive Date: 20210331
  Receipt Date: 20210331
  Transmission Date: 20210420
  Serious: No
  Sender: FDA-Public Use
  Company Number: US-TEVA-2021-US-1895105

PATIENT
  Age: 73 Year
  Sex: Male

DRUGS (1)
  1. POTASSIUM [Suspect]
     Active Substance: POTASSIUM
     Route: 065

REACTIONS (1)
  - Faeces discoloured [Unknown]
